FAERS Safety Report 5880036-4 (Version None)
Quarter: 2008Q3

REPORT INFORMATION
  Report Type: 
  Country: None (occurrence: None)
  Receive Date: 20080911
  Receipt Date: 20080911
  Transmission Date: 20090109
  Serious: Yes (Other)
  Sender: FDA-Public Use
  Company Number: None

PATIENT
  Sex: Male
  Weight: 123.832 kg

DRUGS (12)
  1. DIGITEK [Suspect]
     Indication: CARDIAC FAILURE
     Dosage: .25MG 1 PER DAY ORAL
     Route: 048
     Dates: start: 19950101, end: 20080501
  2. LUPRON [Concomitant]
  3. VERAPAMIL EXTENDED-RELEASE [Concomitant]
  4. POTASSIUM CLORIDE ER [Concomitant]
  5. BUMETANIDE [Concomitant]
  6. DICLOFENAC SODIUM [Concomitant]
  7. CALCIUM CITRATE +D [Concomitant]
  8. DOXAZOSIN MESYLATE [Concomitant]
  9. CENTRUM SILVER [Concomitant]
  10. GLUCOSAMINE-CHONDROITIN [Concomitant]
  11. ASPERIN [Concomitant]
  12. CORTIZON SHOTS [Concomitant]

REACTIONS (4)
  - ASTHENIA [None]
  - CARDIOACTIVE DRUG LEVEL INCREASED [None]
  - FEELING ABNORMAL [None]
  - WEIGHT DECREASED [None]
